FAERS Safety Report 6939992-5 (Version None)
Quarter: 2010Q3

REPORT INFORMATION
  Report Type: 
  Country: None (occurrence: None)
  Receive Date: 20100825
  Receipt Date: 20100813
  Transmission Date: 20110219
  Serious: Yes (Hospitalization, Other)
  Sender: FDA-Public Use
  Company Number: US-BAYER-201030533NA

PATIENT
  Sex: Male

DRUGS (1)
  1. NEXAVAR [Suspect]
     Indication: HEPATIC NEOPLASM MALIGNANT NON-RESECTABLE
     Dosage: TOTAL DAILY DOSE: 400 MG
     Route: 048
     Dates: start: 20100317, end: 20100501

REACTIONS (2)
  - HOSPITALISATION [None]
  - NEOPLASM PROGRESSION [None]
